FAERS Safety Report 16302389 (Version 1)
Quarter: 2019Q2

REPORT INFORMATION
  Report Type: Spontaneous
  Country: US (occurrence: US)
  Receive Date: 20190513
  Receipt Date: 20190513
  Transmission Date: 20190711
  Serious: No
  Sender: FDA-Public Use
  Company Number: US-AUROBINDO-AUR-APL-2019-015608

PATIENT

DRUGS (2)
  1. GABAPENTIN CAPSULES [Suspect]
     Active Substance: GABAPENTIN
     Indication: NERVE COMPRESSION
     Dosage: 100 MILLIGRAM, 3 TIMES A DAY
     Route: 048
  2. OLMESARTAN MEDOXOMIL. [Suspect]
     Active Substance: OLMESARTAN MEDOXOMIL
     Indication: HYPERTENSION
     Dosage: 10 MILLIGRAM (20 MG CUT IN OFF)
     Route: 065

REACTIONS (4)
  - Wrong technique in product usage process [Unknown]
  - Arthralgia [Unknown]
  - Drug ineffective [Unknown]
  - Restless legs syndrome [Unknown]
